FAERS Safety Report 23675806 (Version 3)
Quarter: 2025Q2

REPORT INFORMATION
  Report Type: Spontaneous
  Country: ES (occurrence: ES)
  Receive Date: 20240327
  Receipt Date: 20250527
  Transmission Date: 20250717
  Serious: Yes (Life-Threatening, Other)
  Sender: CSL BEHRING
  Company Number: ES-BEH-2024168434

PATIENT
  Age: 60 Year
  Sex: Male

DRUGS (11)
  1. IDELVION [Suspect]
     Active Substance: COAGULATION FACTOR IX RECOMBINANT HUMAN
     Indication: Factor IX deficiency
     Route: 042
     Dates: start: 20210315
  2. IDELVION [Suspect]
     Active Substance: COAGULATION FACTOR IX RECOMBINANT HUMAN
     Indication: Factor IX deficiency
     Route: 042
     Dates: start: 20210315
  3. IDELVION [Suspect]
     Active Substance: COAGULATION FACTOR IX RECOMBINANT HUMAN
     Dosage: 6000 INTERNATIONAL UNIT, QOW
     Route: 042
  4. IDELVION [Suspect]
     Active Substance: COAGULATION FACTOR IX RECOMBINANT HUMAN
     Dosage: 6000 INTERNATIONAL UNIT, QOW
     Route: 042
  5. IDELVION [Suspect]
     Active Substance: COAGULATION FACTOR IX RECOMBINANT HUMAN
     Route: 042
  6. IDELVION [Suspect]
     Active Substance: COAGULATION FACTOR IX RECOMBINANT HUMAN
     Route: 042
  7. OMEPRAZOLE [Concomitant]
     Active Substance: OMEPRAZOLE
  8. DOXAZOSIN MESYLATE [Concomitant]
     Active Substance: DOXAZOSIN MESYLATE
  9. AMLODIPINE [Concomitant]
     Active Substance: AMLODIPINE BESYLATE
  10. LOSARTAN [Concomitant]
     Active Substance: LOSARTAN
  11. PROPRANOLOL HYDROCHLORIDE [Concomitant]
     Active Substance: PROPRANOLOL HYDROCHLORIDE

REACTIONS (2)
  - Haemorrhage intracranial [Recovered/Resolved]
  - Haematoma [Not Recovered/Not Resolved]

NARRATIVE: CASE EVENT DATE: 20240101
